FAERS Safety Report 6355081-5 (Version None)
Quarter: 2009Q3

REPORT INFORMATION
  Report Type: 
  Country: None (occurrence: None)
  Receive Date: 20090909
  Receipt Date: 20090829
  Transmission Date: 20100115
  Serious: Yes (Other)
  Sender: FDA-Public Use
  Company Number: POMP-1000670

PATIENT
  Age: 3 Year
  Sex: Male
  Weight: 11.1 kg

DRUGS (2)
  1. MYOZYME [Suspect]
     Indication: GLYCOGEN STORAGE DISEASE TYPE II
     Dosage: 20 MG/KG, Q2W, INTRAVENOUS
     Route: 042
     Dates: start: 20060705
  2. MYOZYME [Suspect]

REACTIONS (2)
  - CONDITION AGGRAVATED [None]
  - SUPRAVENTRICULAR EXTRASYSTOLES [None]
